FAERS Safety Report 13099466 (Version 1)
Quarter: 2017Q1

REPORT INFORMATION
  Report Type: Spontaneous
  Country: US (occurrence: US)
  Receive Date: 20170109
  Receipt Date: 20170109
  Transmission Date: 20170428
  Serious: Yes (Death)
  Sender: FDA-Public Use
  Company Number: US-INSYS THERAPEUTICS, INC-INS201612-000883

PATIENT
  Age: 37 Year
  Sex: Male

DRUGS (9)
  1. COCAINE [Suspect]
     Active Substance: COCAINE
     Route: 065
  2. ALCOHOL. [Suspect]
     Active Substance: ALCOHOL
     Indication: DRUG ABUSE
     Route: 048
  3. FENTANYL. [Suspect]
     Active Substance: FENTANYL
  4. ALCOHOL. [Suspect]
     Active Substance: ALCOHOL
  5. ALCOHOL. [Suspect]
     Active Substance: ALCOHOL
     Route: 065
  6. FENTANYL. [Suspect]
     Active Substance: FENTANYL
     Indication: DRUG ABUSE
     Route: 048
  7. COCAINE [Suspect]
     Active Substance: COCAINE
  8. FENTANYL. [Suspect]
     Active Substance: FENTANYL
     Route: 065
  9. COCAINE [Suspect]
     Active Substance: COCAINE
     Indication: DRUG ABUSE
     Route: 048

REACTIONS (2)
  - Toxicity to various agents [Fatal]
  - Drug abuse [Fatal]
